FAERS Safety Report 4531616-X (Version None)
Quarter: 2004Q4

REPORT INFORMATION
  Report Type: 
  Country: None (occurrence: None)
  Receive Date: 20041217
  Receipt Date: 20041217
  Transmission Date: 20050328
  Serious: No
  Sender: FDA-Public Use
  Company Number: None

PATIENT
  Age: 79 Year
  Sex: Female

DRUGS (1)
  1. OMEPRAZOLE [Suspect]
     Indication: GASTROOESOPHAGEAL REFLUX DISEASE
     Dosage: 20MG PO DAILY
     Route: 048
     Dates: start: 20041202

REACTIONS (2)
  - PHARMACEUTICAL PRODUCT COMPLAINT [None]
  - VOMITING [None]
